FAERS Safety Report 8233515 (Version 3)
Quarter: 2013Q1

REPORT INFORMATION
  Report Type: Spontaneous
  Country: US (occurrence: US)
  Receive Date: 20111107
  Receipt Date: 20130219
  Transmission Date: 20140127
  Serious: Yes (Death, Hospitalization)
  Sender: FDA-Public Use
  Company Number: US-B.I. PHARMACEUTICALS,INC./RIDGEFIELD-2011-BP-25537BP

PATIENT
  Age: 78 Year
  Sex: Female
  Weight: 80 kg

DRUGS (11)
  1. PRADAXA [Suspect]
     Indication: ATRIAL FIBRILLATION
     Dosage: 300 MG
     Route: 048
  2. ASPIRIN [Concomitant]
  3. PROPAFENONE [Concomitant]
  4. RAMIPRIL [Concomitant]
  5. FUROSEMIDE [Concomitant]
  6. IBANDRONATE [Concomitant]
  7. VITAMIN D [Concomitant]
  8. FISH OIL [Concomitant]
  9. DOXEPIN [Concomitant]
  10. TIOTROPIUM [Concomitant]
  11. ALBUTEROL [Concomitant]

REACTIONS (9)
  - Haemorrhage [Fatal]
  - Rectal haemorrhage [Fatal]
  - Renal failure [Fatal]
  - Hypotension [Fatal]
  - Intra-abdominal haemorrhage [Fatal]
  - Pulmonary haemorrhage [Fatal]
  - Subarachnoid haemorrhage [Fatal]
  - Contusion [Fatal]
  - Coagulopathy [Fatal]
